FAERS Safety Report 4648984-0 (Version None)
Quarter: 2005Q2

REPORT INFORMATION
  Report Type: 
  Country: None (occurrence: None)
  Receive Date: 20050427
  Receipt Date: 20050408
  Transmission Date: 20051028
  Serious: Yes (Life-Threatening, Hospitalization)
  Sender: FDA-Public Use
  Company Number: USA050495220

PATIENT
  Age: 59 Year
  Sex: Female
  Weight: 59 kg

DRUGS (7)
  1. GLUCAGON [Suspect]
     Indication: HYPOGLYCAEMIA
     Dates: start: 20030101
  2. METOPROLOL [Concomitant]
  3. COLACE (DOCUSATE SODIUM) [Concomitant]
  4. RANITIDINE [Concomitant]
  5. PRILOSEC (OMEPRAZOLE RATIOPHARM) [Concomitant]
  6. GLUCOSAMIDE SULFATE [Concomitant]
  7. IMITREX [Concomitant]

REACTIONS (5)
  - CARDIO-RESPIRATORY ARREST [None]
  - HYPOGLYCAEMIA [None]
  - MYOCARDIAL INFARCTION [None]
  - SICK SINUS SYNDROME [None]
  - VENTRICULAR DYSFUNCTION [None]
